FAERS Safety Report 6975022-7 (Version None)
Quarter: 2010Q3

REPORT INFORMATION
  Report Type: 
  Country: None (occurrence: None)
  Receive Date: 20100910
  Receipt Date: 20090121
  Transmission Date: 20110219
  Serious: No
  Sender: FDA-Public Use
  Company Number: US-WYE-H07815609

PATIENT
  Sex: Female
  Weight: 89.89 kg

DRUGS (1)
  1. PRISTIQ [Suspect]
     Indication: MAJOR DEPRESSION
     Route: 048
     Dates: start: 20081125, end: 20090120

REACTIONS (3)
  - HAEMATOCHEZIA [None]
  - RECTAL HAEMORRHAGE [None]
  - VOMITING [None]
